FAERS Safety Report 12074711 (Version 2)
Quarter: 2016Q1

REPORT INFORMATION
  Report Type: Spontaneous
  Country: US (occurrence: US)
  Receive Date: 20160212
  Receipt Date: 20160216
  Transmission Date: 20160526
  Serious: Yes (Other)
  Sender: FDA-Public Use
  Company Number: PHHY2016US018342

PATIENT
  Age: 21 Year
  Sex: Male

DRUGS (3)
  1. ARTEMETHER+LUMEFANTRINE [Suspect]
     Active Substance: ARTEMETHER\LUMEFANTRINE
     Indication: PYREXIA
     Dosage: UNK
     Route: 065
  2. ARTEMETHER+LUMEFANTRINE [Suspect]
     Active Substance: ARTEMETHER\LUMEFANTRINE
     Indication: CHILLS
  3. ARTEMETHER+LUMEFANTRINE [Suspect]
     Active Substance: ARTEMETHER\LUMEFANTRINE
     Indication: EVIDENCE BASED TREATMENT

REACTIONS (5)
  - Jaundice [Recovering/Resolving]
  - Vanishing bile duct syndrome [Recovering/Resolving]
  - Pruritus [Recovering/Resolving]
  - Ocular icterus [Recovering/Resolving]
  - Excoriation [Recovering/Resolving]
